FAERS Safety Report 18103876 (Version 3)
Quarter: 2020Q4

REPORT INFORMATION
  Report Type: Spontaneous
  Country: US (occurrence: US)
  Receive Date: 20200803
  Receipt Date: 20201104
  Transmission Date: 20210113
  Serious: Yes (Other)
  Sender: FDA-Public Use
  Company Number: US-PFIZER INC-2020253350

PATIENT
  Age: 75 Year
  Sex: Male

DRUGS (2)
  1. INLYTA [Suspect]
     Active Substance: AXITINIB
     Dosage: 1 MG, CYCLIC (TAKE 1 TABLET ON TUESDAY, THURS, SATURDAY + SUNDAY)
     Route: 048
  2. INLYTA [Suspect]
     Active Substance: AXITINIB
     Dosage: 5 MG
     Route: 048

REACTIONS (4)
  - Off label use [Unknown]
  - Liver function test abnormal [Unknown]
  - Product use issue [Unknown]
  - Renal impairment [Unknown]
